FAERS Safety Report 15060264 (Version 2)
Quarter: 2018Q2

REPORT INFORMATION
  Report Type: Spontaneous
  Country: US (occurrence: US)
  Receive Date: 20180625
  Receipt Date: 20180629
  Transmission Date: 20180711
  Serious: No
  Sender: FDA-Public Use
  Company Number: US-TAKEDA-2018TUS020135

PATIENT
  Age: 48 Year
  Sex: Female
  Weight: 70.3 kg

DRUGS (7)
  1. ASACOL [Concomitant]
     Active Substance: MESALAMINE
     Indication: COLITIS ULCERATIVE
     Dosage: 800 MG, UNK
     Dates: start: 20180516
  2. UCERIS [Concomitant]
     Active Substance: BUDESONIDE
     Indication: COLITIS ULCERATIVE
     Dosage: UNK, QD
     Dates: start: 20180516
  3. ENTYVIO [Suspect]
     Active Substance: VEDOLIZUMAB
     Indication: COLITIS ULCERATIVE
     Dosage: 300 MG, UNK
     Route: 042
     Dates: start: 201802
  4. FLONASE                            /00908302/ [Concomitant]
     Active Substance: MOMETASONE FUROATE
     Dosage: UNK
     Route: 045
     Dates: start: 20180516
  5. IRON [Concomitant]
     Active Substance: IRON
     Indication: ANAEMIA
  6. FLUTICASONE. [Concomitant]
     Active Substance: FLUTICASONE
     Dosage: UNK
     Dates: start: 20180516
  7. IRON [Concomitant]
     Active Substance: IRON
     Indication: SUPPLEMENTATION THERAPY
     Dosage: UNK
     Dates: start: 20180516

REACTIONS (2)
  - Pallor [Unknown]
  - Infection [Recovering/Resolving]

NARRATIVE: CASE EVENT DATE: 20180617
